FAERS Safety Report 5234090-3 (Version None)
Quarter: 2007Q1

REPORT INFORMATION
  Report Type: 
  Country: None (occurrence: None)
  Receive Date: 20070208
  Receipt Date: 20070131
  Transmission Date: 20070707
  Serious: Yes (Hospitalization)
  Sender: FDA-Public Use
  Company Number: BE-PFIZER INC-2007007952

PATIENT
  Sex: Male
  Weight: 23 kg

DRUGS (4)
  1. GENOTONORM [Suspect]
     Indication: RENAL FAILURE CHRONIC
     Dates: start: 19980305, end: 20000210
  2. EPOGEN [Concomitant]
     Dates: start: 19991027, end: 19991124
  3. CALCIUM CARBONATE [Concomitant]
     Dosage: DAILY DOSE:2000MG-FREQ:DAILY
     Dates: start: 19991028, end: 19991212
  4. SODIUM CARBONATE [Concomitant]
     Dosage: DAILY DOSE:2GRAM-FREQ:DAILY
     Dates: start: 19991028, end: 20000211

REACTIONS (1)
  - RENAL TRANSPLANT [None]
